FAERS Safety Report 8816643 (Version 1)
Quarter: 2012Q4

REPORT INFORMATION
  Report Type: Spontaneous
  Country: DE (occurrence: None)
  Receive Date: 20120928
  Receipt Date: 20120928
  Transmission Date: 20130627
  Serious: Yes (Life-Threatening, Hospitalization)
  Sender: FDA-Public Use
  Company Number: AUR-APL-2012-04114

PATIENT
  Age: 68 Year
  Sex: Female
  Weight: 104 kg

DRUGS (13)
  1. METFORMIN (METFORMIN) [Suspect]
     Indication: TYPE 2 DIABETES MELLITUS
     Dosage: 2 Dosage forms (2 Dosage forms, 1 in 1 D), Oral
     Route: 048
  2. ASS [Concomitant]
  3. GLIMEGAMMA (GLIMEPIRIDE) [Concomitant]
  4. RAMIPRIL [Concomitant]
  5. BISOPROLOL [Concomitant]
  6. SIMVASTATIN [Concomitant]
  7. LEVOTHYROX (LEVOTHYROXINE SODIUM) INFUSION [Concomitant]
  8. TOREM (TORASEMIDE) [Concomitant]
  9. OMEPRAZOLE [Concomitant]
  10. TILIDIN (VALORON N) [Concomitant]
  11. NOVAMINSULFON (METAMIZOLE SODIUM) [Concomitant]
  12. MARCUMAR (PHENPROCOUMON) [Concomitant]
  13. ALLOPURINOL [Concomitant]

REACTIONS (3)
  - Lactic acidosis [None]
  - Renal failure acute [None]
  - Haemodialysis [None]
